FAERS Safety Report 7334023-X (Version None)
Quarter: 2011Q1

REPORT INFORMATION
  Report Type: 
  Country: None (occurrence: None)
  Receive Date: 20110301
  Receipt Date: 20110301
  Transmission Date: 20110831
  Serious: No
  Sender: FDA-Public Use
  Company Number: None

PATIENT
  Sex: Female
  Weight: 95.709 kg

DRUGS (1)
  1. ALENDRONATE SODIUM [Suspect]

REACTIONS (8)
  - LIGAMENT PAIN [None]
  - ARTHRALGIA [None]
  - TENDON PAIN [None]
  - MALAISE [None]
  - DIARRHOEA [None]
  - MOVEMENT DISORDER [None]
  - HEADACHE [None]
  - ABDOMINAL PAIN UPPER [None]
